FAERS Safety Report 5957065-5 (Version None)
Quarter: 2008Q4

REPORT INFORMATION
  Report Type: 
  Country: None (occurrence: None)
  Receive Date: 20081118
  Receipt Date: 20081110
  Transmission Date: 20090506
  Serious: Yes (Other)
  Sender: FDA-Public Use
  Company Number: PHHY2008CA28524

PATIENT
  Sex: Female

DRUGS (3)
  1. ACLASTA [Suspect]
     Indication: OSTEOPOROSIS
     Dosage: UNK
     Route: 042
     Dates: start: 20080930
  2. CALCIUM [Concomitant]
  3. SYNTHROID [Concomitant]

REACTIONS (5)
  - DYSURIA [None]
  - EYE INFLAMMATION [None]
  - EYE IRRITATION [None]
  - FLANK PAIN [None]
  - OCULAR HYPERAEMIA [None]
